FAERS Safety Report 10173744 (Version 1)
Quarter: 2014Q2

REPORT INFORMATION
  Report Type: Spontaneous
  Country: US (occurrence: US)
  Receive Date: 20140515
  Receipt Date: 20140515
  Transmission Date: 20141212
  Serious: No
  Sender: FDA-Public Use
  Company Number: US-TEVA-481440USA

PATIENT
  Sex: Female
  Weight: 59.02 kg

DRUGS (12)
  1. COPAXONE [Suspect]
     Indication: MULTIPLE SCLEROSIS
     Dates: start: 2006, end: 2006
  2. AMPYRA [Suspect]
     Indication: GAIT DISTURBANCE
     Dosage: 20 MILLIGRAM DAILY;
     Route: 048
     Dates: start: 20140310, end: 20140411
  3. ZANAFLEX [Suspect]
     Indication: PRODUCT USED FOR UNKNOWN INDICATION
  4. NEURONTIN [Concomitant]
  5. BACLOFEN [Concomitant]
     Dates: start: 2014
  6. MIRAPEX [Concomitant]
  7. ZOLOFT [Concomitant]
  8. ULTRACET [Concomitant]
  9. FIORICET [Concomitant]
  10. RISPERDAL [Concomitant]
     Dates: start: 2014
  11. CALCIUM [Concomitant]
  12. VITAMIN D3 [Concomitant]

REACTIONS (5)
  - Communication disorder [Recovering/Resolving]
  - Thinking abnormal [Recovering/Resolving]
  - Confusional state [Recovering/Resolving]
  - JC virus test positive [Not Recovered/Not Resolved]
  - Drug ineffective [Recovered/Resolved]
